FAERS Safety Report 5011285-5 (Version None)
Quarter: 2006Q2

REPORT INFORMATION
  Report Type: 
  Country: None (occurrence: None)
  Receive Date: 20060404
  Receipt Date: 20051230
  Transmission Date: 20061013
  Serious: No
  Sender: FDA-Public Use
  Company Number: US200601000076

PATIENT
  Age: 18 Year
  Sex: Female

DRUGS (7)
  1. CYMBALTA [Suspect]
     Indication: FIBROMYALGIA
     Dosage: SEE IMAGE
     Dates: start: 20040801
  2. ELAVIL [Concomitant]
  3. EFFEXOR [Concomitant]
  4. PREVACID [Concomitant]
  5. COMPAZINE [Concomitant]
  6. ELSPAR [Concomitant]
  7. PROVIGIL (MODANFINIL) [Concomitant]

REACTIONS (3)
  - FEELING ABNORMAL [None]
  - MEDICATION ERROR [None]
  - PARAESTHESIA [None]
